FAERS Safety Report 9217202 (Version 1)
Quarter: 2013Q2

REPORT INFORMATION
  Report Type: Spontaneous
  Country: DE (occurrence: DE)
  Receive Date: 20130408
  Receipt Date: 20130408
  Transmission Date: 20140414
  Serious: Yes (Hospitalization, Disabling)
  Sender: FDA-Public Use
  Company Number: DE-JNJFOC-20130402125

PATIENT
  Age: 65 Year
  Sex: Male
  Weight: 84 kg

DRUGS (4)
  1. XARELTO [Suspect]
     Indication: ATRIAL FIBRILLATION
     Route: 048
     Dates: start: 20121015, end: 20121214
  2. NEBIVOLOL [Concomitant]
     Indication: ATRIAL FIBRILLATION
     Route: 065
     Dates: start: 201201, end: 20121214
  3. JANUVIA [Concomitant]
     Indication: TYPE 2 DIABETES MELLITUS
     Route: 065
     Dates: start: 201201, end: 20121214
  4. BLOPRESS [Concomitant]
     Indication: HYPERTENSION
     Route: 065
     Dates: start: 201201, end: 20121214

REACTIONS (3)
  - Coronary artery stenosis [Unknown]
  - Atrial flutter [Unknown]
  - Intracardiac thrombus [Unknown]
